FAERS Safety Report 21983547 (Version 1)
Quarter: 2023Q1

REPORT INFORMATION
  Report Type: Spontaneous
  Country: US (occurrence: US)
  Receive Date: 20230213
  Receipt Date: 20230213
  Transmission Date: 20230417
  Serious: No
  Sender: FDA-Public Use
  Company Number: US-GLENMARK PHARMACEUTICALS-2022GMK073428

PATIENT

DRUGS (1)
  1. MUPIROCIN [Suspect]
     Active Substance: MUPIROCIN
     Indication: Fungal skin infection
     Dosage: UNK
     Route: 065
     Dates: end: 202208

REACTIONS (4)
  - Product use in unapproved indication [Unknown]
  - Self-medication [Unknown]
  - Expired product administered [Unknown]
  - Product physical consistency issue [Unknown]
